FAERS Safety Report 9306227 (Version 1)
Quarter: 2013Q2

REPORT INFORMATION
  Report Type: Spontaneous
  Country: DE (occurrence: DE)
  Receive Date: 20130523
  Receipt Date: 20130523
  Transmission Date: 20140414
  Serious: Yes (Other)
  Sender: FDA-Public Use
  Company Number: DE-GLAXOSMITHKLINE-D0079829A

PATIENT
  Age: 36 Year
  Sex: Male

DRUGS (3)
  1. PAROXETIN [Suspect]
     Indication: DEPRESSION
     Dosage: 20MG PER DAY
     Route: 065
     Dates: start: 2007, end: 201212
  2. DOMINAL FORTE [Suspect]
     Indication: SLEEP DISORDER
     Dosage: 30MG PER DAY
     Route: 048
     Dates: start: 201305
  3. SEROQUEL [Suspect]
     Indication: DEPRESSION
     Route: 065
     Dates: start: 2007, end: 201212

REACTIONS (12)
  - Rectal haemorrhage [Unknown]
  - Withdrawal syndrome [Unknown]
  - Nightmare [Unknown]
  - Pain [Unknown]
  - Chest pain [Not Recovered/Not Resolved]
  - Headache [Unknown]
  - Anxiety [Unknown]
  - Urticaria [Unknown]
  - Generalised erythema [Unknown]
  - Pain in jaw [Unknown]
  - Illusion [Unknown]
  - Pain in extremity [Not Recovered/Not Resolved]
